FAERS Safety Report 5278205-X (Version None)
Quarter: 2007Q1

REPORT INFORMATION
  Report Type: 
  Country: None (occurrence: None)
  Receive Date: 20070328
  Receipt Date: 20070316
  Transmission Date: 20070707
  Serious: Yes (Hospitalization)
  Sender: FDA-Public Use
  Company Number: GB-JNJFOC-20070304365

PATIENT
  Age: 30 Year
  Sex: Female

DRUGS (7)
  1. REMICADE [Suspect]
     Route: 042
  2. REMICADE [Suspect]
     Route: 042
  3. REMICADE [Suspect]
     Route: 042
  4. REMICADE [Suspect]
     Route: 042
  5. REMICADE [Suspect]
     Route: 042
  6. REMICADE [Suspect]
     Indication: DRUG USE FOR UNKNOWN INDICATION
     Route: 042
  7. INHALER [Concomitant]
     Indication: ASTHMA

REACTIONS (6)
  - CHILLS [None]
  - COLD SWEAT [None]
  - INFUSION RELATED REACTION [None]
  - SYNCOPE [None]
  - TACHYCARDIA [None]
  - VOMITING [None]
